FAERS Safety Report 13416441 (Version 1)
Quarter: 2017Q2

REPORT INFORMATION
  Report Type: Spontaneous
  Country: FR (occurrence: FR)
  Receive Date: 20170406
  Receipt Date: 20170406
  Transmission Date: 20170830
  Serious: Yes (Congenital Anomaly, Other)
  Sender: FDA-Public Use
  Company Number: FR-ALLERGAN-1713418US

PATIENT

DRUGS (2)
  1. SERESTA [Suspect]
     Active Substance: OXAZEPAM
     Indication: DEPRESSION
     Dosage: 10 MG, QD
     Route: 064
     Dates: start: 2014
  2. ESCITALOPRAM OXALATE - BP [Suspect]
     Active Substance: ESCITALOPRAM OXALATE
     Indication: DEPRESSION
     Dosage: 15 MG, QD
     Route: 064
     Dates: start: 2014

REACTIONS (3)
  - Coarctation of the aorta [Not Recovered/Not Resolved]
  - Congenital nose malformation [Not Recovered/Not Resolved]
  - Foetal exposure during pregnancy [Unknown]

NARRATIVE: CASE EVENT DATE: 2014
